FAERS Safety Report 7164758-3 (Version None)
Quarter: 2010Q4

REPORT INFORMATION
  Report Type: 
  Country: None (occurrence: None)
  Receive Date: 20101215
  Receipt Date: 20101206
  Transmission Date: 20110411
  Serious: Yes (Death, Hospitalization, Other)
  Sender: FDA-Public Use
  Company Number: DE-GENENTECH-309949

PATIENT
  Sex: Male
  Weight: 76 kg

DRUGS (5)
  1. MABTHERA [Suspect]
     Indication: CHRONIC LYMPHOCYTIC LEUKAEMIA
     Dosage: 375 MG/M2, UNK
     Route: 065
     Dates: start: 20091010, end: 20100311
  2. FLUDARABINE PHOSPHATE [Suspect]
     Indication: CHRONIC LYMPHOCYTIC LEUKAEMIA
     Dosage: 25 MG, UNK
     Route: 042
     Dates: start: 20091012, end: 20100311
  3. CYCLOPHOSPHAMIDE [Suspect]
     Indication: CHRONIC LYMPHOCYTIC LEUKAEMIA
     Dosage: 250 MG, UNK
     Route: 042
     Dates: start: 20091012, end: 20100311
  4. DEXAMETHASONE [Concomitant]
     Indication: CHRONIC LYMPHOCYTIC LEUKAEMIA
     Dosage: UNK
     Route: 042
     Dates: start: 20091012, end: 20100311
  5. TAMBOCOR [Concomitant]
     Indication: ATRIAL FIBRILLATION
     Dosage: 100 MG, UNK

REACTIONS (4)
  - GUILLAIN-BARRE SYNDROME [None]
  - IIIRD NERVE PARALYSIS [None]
  - PANCYTOPENIA [None]
  - PYREXIA [None]
